FAERS Safety Report 16700197 (Version 1)
Quarter: 2019Q3

REPORT INFORMATION
  Report Type: Spontaneous
  Country: AU (occurrence: AU)
  Receive Date: 20190814
  Receipt Date: 20190814
  Transmission Date: 20191004
  Serious: Yes (Other)
  Sender: FDA-Public Use
  Company Number: AU-SUN PHARMACEUTICAL INDUSTRIES LTD-2018R1-199547

PATIENT
  Age: 24 Year
  Sex: Male

DRUGS (8)
  1. CLOZAPINE. [Suspect]
     Active Substance: CLOZAPINE
     Indication: SCHIZOPHRENIA
     Dosage: 700 MILLIGRAM, DAILY
     Route: 065
  2. VALPROIC ACID. [Interacting]
     Active Substance: VALPROIC ACID
     Indication: SCHIZOPHRENIA
     Dosage: 1000 MILLIGRAM, DAILY
     Route: 065
  3. VALPROIC ACID. [Interacting]
     Active Substance: VALPROIC ACID
     Dosage: 2000 UNK
  4. CLOZAPINE. [Interacting]
     Active Substance: CLOZAPINE
     Dosage: 750 UNK
  5. CLOZAPINE. [Interacting]
     Active Substance: CLOZAPINE
     Dosage: 350 UNK
  6. VALPROIC ACID. [Interacting]
     Active Substance: VALPROIC ACID
     Dosage: 1500 UNK
     Route: 065
  7. CLOZAPINE. [Interacting]
     Active Substance: CLOZAPINE
     Dosage: 650 UNK
  8. HALOPERIDOL. [Interacting]
     Active Substance: HALOPERIDOL
     Indication: SCHIZOPHRENIA
     Dosage: UNK
     Route: 065

REACTIONS (7)
  - Muscle contractions involuntary [Unknown]
  - Dysarthria [Unknown]
  - Generalised tonic-clonic seizure [Unknown]
  - Drug interaction [Unknown]
  - Somnolence [Unknown]
  - Toxicity to various agents [Unknown]
  - Salivary hypersecretion [Unknown]
